FAERS Safety Report 8317238-3 (Version None)
Quarter: 2012Q2

REPORT INFORMATION
  Report Type: 
  Country: None (occurrence: None)
  Receive Date: 20120427
  Receipt Date: 20120420
  Transmission Date: 20120825
  Serious: Yes (Hospitalization)
  Sender: FDA-Public Use
  Company Number: FR-SANOFI-AVENTIS-2012SA027627

PATIENT
  Age: 65 Year
  Sex: Male

DRUGS (8)
  1. LASIX [Suspect]
     Route: 048
  2. PROPRANOLOL [Suspect]
     Route: 048
  3. ALDACTONE [Suspect]
     Route: 048
  4. ALISKIREN [Concomitant]
     Route: 048
  5. GLICLAZIDE [Concomitant]
     Route: 048
  6. METFORMIN HCL [Concomitant]
  7. OLMESARTAN MEDOXOMIL [Suspect]
     Route: 048
  8. SORAFENIB [Suspect]
     Route: 048
     Dates: start: 20120113

REACTIONS (1)
  - PAIN IN EXTREMITY [None]
